FAERS Safety Report 5596464-0 (Version None)
Quarter: 2007Q4

REPORT INFORMATION
  Report Type: 
  Country: None (occurrence: None)
  Receive Date: 20071218
  Receipt Date: 20070125
  Transmission Date: 20080405
  Serious: Yes (Hospitalization, Other)
  Sender: FDA-Public Use
  Company Number: 2006081900

PATIENT
  Age: 49 Year
  Sex: Female
  Weight: 59 kg

DRUGS (4)
  1. BEXTRA [Suspect]
     Indication: PAIN
     Dosage: 10 MG (10 MG,1 IN 1 D)
     Dates: start: 20041101, end: 20050327
  2. BEXTRA [Suspect]
     Indication: RHEUMATOID ARTHRITIS
     Dosage: 10 MG (10 MG,1 IN 1 D)
     Dates: start: 20041101, end: 20050327
  3. VIOXX [Suspect]
     Indication: PAIN
     Dosage: 12.5 MG AND/OR 25MG (1 IN 1 D)
     Dates: start: 19990501, end: 20040301
  4. VIOXX [Suspect]
     Indication: RHEUMATOID ARTHRITIS
     Dosage: 12.5 MG AND/OR 25MG (1 IN 1 D)
     Dates: start: 19990501, end: 20040301

REACTIONS (1)
  - MYOCARDIAL INFARCTION [None]
